FAERS Safety Report 8021795-4 (Version None)
Quarter: 2011Q4

REPORT INFORMATION
  Report Type: 
  Country: None (occurrence: None)
  Receive Date: 20111230
  Receipt Date: 20111219
  Transmission Date: 20120403
  Serious: No
  Sender: FDA-Public Use
  Company Number: 1000026351

PATIENT
  Sex: Female

DRUGS (2)
  1. ESCITALOPRAM OXALATE [Suspect]
     Dates: start: 20090901, end: 20100101
  2. ESCITALOPRAM OXALATE [Suspect]
     Dosage: 15 MG (15 MG, 1 IN 1 D), 10 MG (10 MG, 1 IN 1 D)
     Dates: start: 20100101

REACTIONS (6)
  - FATIGUE [None]
  - WEIGHT INCREASED [None]
  - VOMITING [None]
  - DIZZINESS [None]
  - SWOLLEN TONGUE [None]
  - DYSPNOEA [None]
